FAERS Safety Report 26095284 (Version 2)
Quarter: 2025Q4

REPORT INFORMATION
  Report Type: Spontaneous
  Country: US (occurrence: US)
  Receive Date: 20251127
  Receipt Date: 20251209
  Transmission Date: 20260118
  Serious: Yes (Other)
  Sender: TEVA
  Company Number: US-TEVA-VS-3394793

PATIENT
  Age: 50 Year
  Sex: Female

DRUGS (5)
  1. HYDROCORTISONE [Suspect]
     Active Substance: HYDROCORTISONE
     Indication: Pruritus
     Route: 065
  2. DIROXIMEL FUMARATE [Suspect]
     Active Substance: DIROXIMEL FUMARATE
     Indication: Relapsing-remitting multiple sclerosis
     Dosage: DELAYED-RELEASE ORAL DIROXIMEL FUMARATE AT 231MG FOR TWO AND A HALF YEARS
     Route: 048
  3. DIPHENHYDRAMINE [Suspect]
     Active Substance: DIPHENHYDRAMINE
     Indication: Pain
     Route: 065
  4. CORTISONE [Suspect]
     Active Substance: CORTISONE
     Indication: Pain
     Route: 061
  5. ACETAMINOPHEN [Suspect]
     Active Substance: ACETAMINOPHEN
     Indication: Pain
     Route: 065

REACTIONS (2)
  - Herpes zoster [Recovered/Resolved]
  - Drug ineffective [Unknown]
